FAERS Safety Report 11105409 (Version 1)
Quarter: 2015Q2

REPORT INFORMATION
  Report Type: Report from Study
  Country: US (occurrence: US)
  Receive Date: 20150512
  Receipt Date: 20150512
  Transmission Date: 20150821
  Serious: No
  Sender: FDA-Public Use
  Company Number: US-LUPIN PHARMACEUTICALS INC.-E2B_00003417

PATIENT
  Age: 55 Year
  Sex: Female
  Weight: 91.25 kg

DRUGS (5)
  1. ZIPRASIDONE HYDROCHLORIDE CAPSULES 20 MG [Suspect]
     Active Substance: ZIPRASIDONE HYDROCHLORIDE
  2. LOSARTAN [Concomitant]
     Active Substance: LOSARTAN
     Indication: HYPERTENSION
  3. ZIPRASIDONE HYDROCHLORIDE CAPSULES 20 MG [Suspect]
     Active Substance: ZIPRASIDONE HYDROCHLORIDE
     Indication: DELUSIONAL DISORDER, UNSPECIFIED TYPE
     Dates: start: 20140731
  4. CLONIDINE. [Concomitant]
     Active Substance: CLONIDINE
     Indication: HYPERTENSION
  5. ZIPRASIDONE HYDROCHLORIDE CAPSULES 20 MG [Suspect]
     Active Substance: ZIPRASIDONE HYDROCHLORIDE

REACTIONS (11)
  - Vomiting [Recovered/Resolved]
  - Nausea [Not Recovered/Not Resolved]
  - Joint stiffness [Unknown]
  - Tremor [Unknown]
  - Tachyphrenia [Recovered/Resolved]
  - Panic attack [Recovered/Resolved]
  - Drug ineffective [Unknown]
  - Dyskinesia [Not Recovered/Not Resolved]
  - Coordination abnormal [Not Recovered/Not Resolved]
  - Chills [Unknown]
  - Delusional disorder, unspecified type [Recovered/Resolved]

NARRATIVE: CASE EVENT DATE: 201503
